FAERS Safety Report 5694946-4 (Version None)
Quarter: 2008Q2

REPORT INFORMATION
  Report Type: 
  Country: None (occurrence: None)
  Receive Date: 20080404
  Receipt Date: 20080331
  Transmission Date: 20081010
  Serious: Yes (Death)
  Sender: FDA-Public Use
  Company Number: JP-BRISTOL-MYERS SQUIBB COMPANY-14136527

PATIENT
  Age: 64 Year
  Sex: Male

DRUGS (2)
  1. BRIPLATIN [Suspect]
     Indication: RECTAL CANCER
     Dosage: THERAPY DURATION -1 (UNITS NOT SPECIFIED).
     Route: 041
     Dates: start: 20050917, end: 20050917
  2. IRINOTECAN HCL [Concomitant]
     Route: 042
     Dates: start: 20050917, end: 20051001

REACTIONS (1)
  - HEPATITIS B [None]
